FAERS Safety Report 10885048 (Version 1)
Quarter: 2015Q1

REPORT INFORMATION
  Report Type: Spontaneous
  Country: US (occurrence: US)
  Receive Date: 20150304
  Receipt Date: 20150304
  Transmission Date: 20150721
  Serious: No
  Sender: FDA-Public Use
  Company Number: US-TEVA-487646USA

PATIENT
  Age: 74 Year
  Sex: Female

DRUGS (5)
  1. CETIRIZINE W/PSEUDOEPHEDRINE [Suspect]
     Active Substance: CETIRIZINE HYDROCHLORIDE\PSEUDOEPHEDRINE HYDROCHLORIDE
     Indication: HYPERSENSITIVITY
     Route: 048
     Dates: start: 20140603
  2. VITAMIN D [Concomitant]
     Active Substance: CHOLECALCIFEROL
  3. TAMOXIFEN [Concomitant]
     Active Substance: TAMOXIFEN
  4. PRILOSEC [Concomitant]
     Active Substance: OMEPRAZOLE MAGNESIUM
  5. LOSARTAN [Concomitant]
     Active Substance: LOSARTAN

REACTIONS (3)
  - Dizziness [Recovered/Resolved]
  - Off label use [Unknown]
  - Drug administered to patient of inappropriate age [Unknown]

NARRATIVE: CASE EVENT DATE: 20140603
